FAERS Safety Report 25367930 (Version 1)
Quarter: 2025Q2

REPORT INFORMATION
  Report Type: Spontaneous
  Country: US (occurrence: None)
  Receive Date: 20250527
  Receipt Date: 20250527
  Transmission Date: 20250717
  Serious: No
  Sender: FDA-CTU
  Company Number: None

PATIENT
  Age: 60 Year
  Sex: Female

DRUGS (1)
  1. FORTEO [Suspect]
     Active Substance: TERIPARATIDE
     Indication: Polymyalgia rheumatica
     Dosage: OTHER QUANTITY : 20MCG (0.08ML) ;?FREQUENCY : DAILY;?
     Route: 058
     Dates: start: 202504

REACTIONS (2)
  - Hospitalisation [None]
  - Intentional dose omission [None]
